FAERS Safety Report 7514008-0 (Version None)
Quarter: 2011Q2

REPORT INFORMATION
  Report Type: 
  Country: None (occurrence: None)
  Receive Date: 20110531
  Receipt Date: 20110526
  Transmission Date: 20111010
  Serious: Yes (Death, Hospitalization)
  Sender: FDA-Public Use
  Company Number: PHHY2011NO36244

PATIENT
  Age: 57 Year
  Sex: Female
  Weight: 107 kg

DRUGS (9)
  1. METFORMIN HCL [Suspect]
     Indication: DIABETES MELLITUS
     Dosage: UNK UKN, UNK
     Route: 048
  2. ZOCOR [Concomitant]
     Dosage: UNK UKN, UNK
     Route: 048
  3. ATACAND [Suspect]
     Dosage: UNK UKN, UNK
  4. LIPITOR [Suspect]
     Dosage: UNK UKN, UNK
  5. ACTOS [Concomitant]
     Route: 048
  6. GLUCOPHAGE [Concomitant]
     Dosage: UNK UKN, UNK
  7. VALSARTAN  AND HYDROCHLOROTHIAZIDE [Concomitant]
     Dosage: UNK UKN, UNK
     Route: 048
  8. METFORMIN HCL [Suspect]
     Route: 048
  9. TEGRETOL [Concomitant]
     Dosage: UNK UKN, UNK
     Route: 048

REACTIONS (7)
  - VOMITING [None]
  - METABOLIC ACIDOSIS [None]
  - LACTIC ACIDOSIS [None]
  - RENAL IMPAIRMENT [None]
  - DIARRHOEA [None]
  - CARDIAC ARREST [None]
  - OVERWEIGHT [None]
